FAERS Safety Report 24720839 (Version 1)
Quarter: 2024Q4

REPORT INFORMATION
  Report Type: Spontaneous
  Country: GB (occurrence: GB)
  Receive Date: 20241211
  Receipt Date: 20241211
  Transmission Date: 20250115
  Serious: Yes (Other)
  Sender: RECKITT BENCKISER
  Company Number: GB-PROD-AS2-212756134-20-24-GBR-RB-0012788

PATIENT
  Sex: Female

DRUGS (1)
  1. DETTOL FIRST AID ANTISEPTIC [Suspect]
     Active Substance: CHLOROXYLENOL
     Indication: Suicidal behaviour
     Dosage: UNKNOWN
     Route: 048

REACTIONS (2)
  - Suicidal behaviour [Unknown]
  - Vomiting [Unknown]
